FAERS Safety Report 23934462 (Version 2)
Quarter: 2024Q3

REPORT INFORMATION
  Report Type: Spontaneous
  Country: US (occurrence: US)
  Receive Date: 20240603
  Receipt Date: 20240805
  Transmission Date: 20241017
  Serious: No
  Sender: ELI LILLY AND CO
  Company Number: US-ELI_LILLY_AND_COMPANY-US202405018693

PATIENT
  Age: 26 Year
  Sex: Female

DRUGS (2)
  1. TALTZ [Suspect]
     Active Substance: IXEKIZUMAB
     Indication: Psoriasis
     Dosage: 80 MG, EVERY FOUR WEEKS
     Route: 058
  2. TALTZ [Suspect]
     Active Substance: IXEKIZUMAB
     Dosage: 80 MG, OTHER (EVERY 2 WEEKS FOR 5 DOSES)
     Route: 058

REACTIONS (6)
  - Maternal exposure during pregnancy [Unknown]
  - Malaise [Unknown]
  - Cough [Unknown]
  - Nasal congestion [Unknown]
  - Ear discomfort [Unknown]
  - Oropharyngeal pain [Unknown]

NARRATIVE: CASE EVENT DATE: 20240730
